FAERS Safety Report 8012411-6 (Version None)
Quarter: 2011Q4

REPORT INFORMATION
  Report Type: 
  Country: None (occurrence: None)
  Receive Date: 20111228
  Receipt Date: 20111219
  Transmission Date: 20120403
  Serious: Yes (Death)
  Sender: FDA-Public Use
  Company Number: US-PFIZER INC-2011309847

PATIENT
  Age: 32 Year
  Sex: Male

DRUGS (6)
  1. CARISOPRODOL [Suspect]
  2. MARIJUANA [Suspect]
  3. FENTANYL [Suspect]
  4. ACETAMINOPHEN AND OXYCODONE HCL [Suspect]
  5. ALPRAZOLAM [Suspect]
  6. CLONAZEPAM [Suspect]

REACTIONS (3)
  - RESPIRATORY ARREST [None]
  - DEATH [None]
  - CARDIAC ARREST [None]
